FAERS Safety Report 20159032 (Version 3)
Quarter: 2022Q1

REPORT INFORMATION
  Report Type: Report from Study
  Country: US (occurrence: US)
  Receive Date: 20211208
  Receipt Date: 20220208
  Transmission Date: 20220423
  Serious: Yes (Other)
  Sender: FDA-Public Use
  Company Number: US-ABBVIE-21K-163-4159436-00

PATIENT
  Sex: Male

DRUGS (2)
  1. HUMIRA [Suspect]
     Active Substance: ADALIMUMAB
     Indication: Rheumatoid arthritis
     Dosage: CF
     Route: 058
  2. HUMIRA [Suspect]
     Active Substance: ADALIMUMAB
     Route: 058

REACTIONS (9)
  - Intervertebral disc degeneration [Recovering/Resolving]
  - Nervous system disorder [Unknown]
  - Hypoaesthesia [Unknown]
  - Burning sensation [Unknown]
  - Arthritis [Unknown]
  - Arthritis [Unknown]
  - Pain in extremity [Unknown]
  - Scoliosis [Unknown]
  - Bone pain [Unknown]
